FAERS Safety Report 23748927 (Version 1)
Quarter: 2024Q2

REPORT INFORMATION
  Report Type: Spontaneous
  Country: CN (occurrence: CN)
  Receive Date: 20240416
  Receipt Date: 20240416
  Transmission Date: 20240716
  Serious: Yes (Hospitalization)
  Sender: FDA-Public Use
  Company Number: None

PATIENT
  Age: 54 Year
  Sex: Male
  Weight: 72 kg

DRUGS (20)
  1. CYCLOPHOSPHAMIDE [Suspect]
     Active Substance: CYCLOPHOSPHAMIDE
     Indication: Diffuse large B-cell lymphoma
     Dosage: UNK, FROM JUNE-2023 TO NOV-2023, AS A PART OF R-CHOP REGIMEN CHEMOTHERAPY FOR 6 CYCLES OF CHEMOTHERA
     Route: 065
  2. CYCLOPHOSPHAMIDE [Suspect]
     Active Substance: CYCLOPHOSPHAMIDE
     Dosage: 1200 MG, ONE TIME IN ONE DAY, DILUTED WITH 0.9% SODIUM CHLORIDE 30 ML, AS A PART OF CHOP REGIMEN
     Route: 041
     Dates: start: 20240121, end: 20240121
  3. CYCLOPHOSPHAMIDE [Suspect]
     Active Substance: CYCLOPHOSPHAMIDE
     Dosage: UNK, AS A PART OF CHOP REGIMEN FOR CHEMOTHERAPY FOR 1 CYCLE
     Route: 065
     Dates: start: 20240324
  4. SODIUM CHLORIDE [Suspect]
     Active Substance: SODIUM CHLORIDE
     Indication: Medication dilution
     Dosage: 250 ML, QD, STRENGTH: 0.9%, DOSAGE FORM: INJECTION, USED TO DILUTE MAGNESIUM ISOGLYCYRRHIZINATE 200
     Route: 041
     Dates: start: 20240113, end: 20240123
  5. SODIUM CHLORIDE [Suspect]
     Active Substance: SODIUM CHLORIDE
     Dosage: 100 ML, QD, STRENGTH: 0.9%, DOSAGE FORM: INJECTION, USED TO DILUTE GLUTATHIONE 2.4 G
     Route: 041
     Dates: start: 20240117, end: 20240123
  6. SODIUM CHLORIDE [Suspect]
     Active Substance: SODIUM CHLORIDE
     Dosage: 30 ML, ONE TIME IN ONE DAY, STRENGTH: 0.9%, DOSAGE FORM: INJECTION, USED TO DILUTE VINCRISTINE SULFA
     Route: 041
     Dates: start: 20240121, end: 20240121
  7. SODIUM CHLORIDE [Suspect]
     Active Substance: SODIUM CHLORIDE
     Dosage: 30 ML, ONE TIME IN ONE DAY, STRENGTH: 0.9%, DOSAGE FORM: INJECTION, USED TO DILUTE CYCLOPHOSPHAMIDE
     Route: 041
     Dates: start: 20240121, end: 20240121
  8. DEXTROSE [Suspect]
     Active Substance: DEXTROSE\DEXTROSE MONOHYDRATE
     Indication: Medication dilution
     Dosage: 50 ML, ONE TIME IN ONE DAY, STRENGTH: 5%, DOSAGE FORM: INJECTION, USED TO DILUTE PIRARUBICIN FOR 80
     Route: 041
     Dates: start: 20240121, end: 20240121
  9. PIRARUBICIN HYDROCHLORIDE [Suspect]
     Active Substance: PIRARUBICIN HYDROCHLORIDE
     Indication: Diffuse large B-cell lymphoma
     Dosage: UNK, FROM JUNE-2023 TO NOV-2023, AS A PART OF R-CHOP REGIMEN CHEMOTHERAPY FOR 6 CYCLES OF CHEMOTHERA
     Route: 065
  10. PIRARUBICIN HYDROCHLORIDE [Suspect]
     Active Substance: PIRARUBICIN HYDROCHLORIDE
     Dosage: 80 MG, ONE TIME IN ONE DAY, DILUTED WITH 5% GLUCOSE 50 ML, AS A PART OF CHOP REGIMEN
     Route: 041
     Dates: start: 20240121, end: 20240121
  11. PIRARUBICIN HYDROCHLORIDE [Suspect]
     Active Substance: PIRARUBICIN HYDROCHLORIDE
     Dosage: UNK, AS A PART OF CHOP REGIMEN FOR CHEMOTHERAPY FOR 1 CYCLE
     Route: 065
     Dates: start: 20240324
  12. VINCRISTINE SULFATE [Suspect]
     Active Substance: VINCRISTINE SULFATE
     Indication: Diffuse large B-cell lymphoma
     Dosage: UNK, FROM JUNE-2023 TO NOV-2023, AS A PART OF R-CHOP REGIMEN CHEMOTHERAPY FOR 6 CYCLES OF CHEMOTHERA
     Route: 065
  13. VINCRISTINE SULFATE [Suspect]
     Active Substance: VINCRISTINE SULFATE
     Dosage: 2 MG, ONE TIME IN ONE DAY, DILUTED WITH 0.9% SODIUM CHLORIDE 30 ML, AS A PART OF CHOP REGIMEN
     Route: 041
     Dates: start: 20240121, end: 20240121
  14. VINCRISTINE SULFATE [Suspect]
     Active Substance: VINCRISTINE SULFATE
     Dosage: UNK, AS A PART OF CHOP REGIMEN FOR CHEMOTHERAPY FOR 1 CYCLE
     Route: 065
     Dates: start: 20240324
  15. RITUXIMAB [Suspect]
     Active Substance: RITUXIMAB
     Indication: Diffuse large B-cell lymphoma
     Dosage: UNK, FROM JUNE-2023 TO NOV-2023, AS A PART OF R-CHOP REGIMEN CHEMOTHERAPY FOR 6 CYCLES OF CHEMOTHERA
     Route: 065
  16. PREDNISOLONE ACETATE [Suspect]
     Active Substance: PREDNISOLONE ACETATE
     Indication: Diffuse large B-cell lymphoma
     Dosage: UNK, FROM JUNE-2023 TO NOV-2023, AS A PART OF R-CHOP REGIMEN CHEMOTHERAPY FOR 6 CYCLES OF CHEMOTHERA
     Route: 065
  17. PREDNISOLONE ACETATE [Suspect]
     Active Substance: PREDNISOLONE ACETATE
     Dosage: 100 MG, ONE TIME IN ONE DAY, AS A PART OF CHOP REGIMEN
     Route: 048
     Dates: start: 20240121, end: 20240125
  18. PREDNISOLONE ACETATE [Suspect]
     Active Substance: PREDNISOLONE ACETATE
     Dosage: UNK, AS A PART OF CHOP REGIMEN FOR CHEMOTHERAPY FOR 1 CYCLE
     Route: 065
     Dates: start: 20240324
  19. MAGNESIUM ISOGLYCYRRHIZINATE [Suspect]
     Active Substance: MAGNESIUM ISOGLYCYRRHIZINATE
     Indication: Prophylaxis
     Dosage: 200 MG, QD, DILUTED WITH 0.9% SODIUM CHLORIDE 250 ML
     Route: 041
     Dates: start: 20240113, end: 20240123
  20. GLUTATHIONE [Suspect]
     Active Substance: GLUTATHIONE
     Indication: Prophylaxis
     Dosage: 2.4 G, QD, DILUTED WITH 0.9% SODIUM CHLORIDE INJECTION 100 ML
     Route: 041
     Dates: start: 20240117, end: 20240123

REACTIONS (1)
  - Transaminases increased [Recovering/Resolving]

NARRATIVE: CASE EVENT DATE: 20240315
